FAERS Safety Report 5256351-4 (Version None)
Quarter: 2007Q1

REPORT INFORMATION
  Report Type: 
  Country: None (occurrence: None)
  Receive Date: 20070306
  Receipt Date: 20070227
  Transmission Date: 20070707
  Serious: Yes (Hospitalization)
  Sender: FDA-Public Use
  Company Number: US-BAYER-200710262BWH

PATIENT
  Age: 55 Year
  Sex: Male
  Weight: 107 kg

DRUGS (16)
  1. SORAFENIB [Suspect]
     Indication: HEPATIC NEOPLASM MALIGNANT
     Dosage: TOTAL DAILY DOSE: 400 MG  UNIT DOSE: 200 MG
     Route: 048
     Dates: start: 20061027
  2. SORAFENIB [Suspect]
     Dosage: TOTAL DAILY DOSE: 800 MG  UNIT DOSE: 200 MG
     Route: 048
     Dates: start: 20060922, end: 20061026
  3. DOXORUBICIN HCL [Suspect]
     Indication: HEPATIC NEOPLASM MALIGNANT
     Route: 042
     Dates: start: 20061103
  4. DOXORUBICIN HCL [Suspect]
     Dosage: UNIT DOSE: 45 MG/M2
     Route: 042
     Dates: start: 20061222, end: 20061222
  5. DOXORUBICIN HCL [Suspect]
     Dosage: UNIT DOSE: 45 MG/M2
     Route: 042
     Dates: start: 20061122, end: 20061122
  6. DOXORUBICIN HCL [Suspect]
     Route: 042
     Dates: start: 20060922, end: 20061013
  7. ZANTAC [Concomitant]
     Indication: BARRETT'S OESOPHAGUS
     Route: 048
     Dates: start: 20060201
  8. COUMADIN [Concomitant]
     Indication: THROMBOSIS PROPHYLAXIS
     Route: 048
     Dates: start: 20060201
  9. VERAPAMIL [Concomitant]
     Indication: HYPERTENSION
     Route: 048
     Dates: start: 20060201
  10. METFORMIN [Concomitant]
     Indication: DIABETES MELLITUS
     Route: 048
     Dates: start: 20060401
  11. XANAX [Concomitant]
     Indication: PROPHYLAXIS
     Route: 048
     Dates: start: 20060915
  12. KYTRIL [Concomitant]
     Indication: NAUSEA
     Route: 048
     Dates: start: 20060927
  13. COMPAZINE [Concomitant]
     Indication: NAUSEA
     Route: 048
     Dates: start: 20060925
  14. DECADRON [Concomitant]
     Indication: PAIN
     Route: 048
     Dates: start: 20061020
  15. REGLAN [Concomitant]
     Indication: NAUSEA
     Route: 048
     Dates: start: 20061020, end: 20070115
  16. PRILOSEC [Concomitant]
     Indication: BARRETT'S OESOPHAGUS
     Route: 048
     Dates: start: 20070115

REACTIONS (3)
  - ANAEMIA [None]
  - DEHYDRATION [None]
  - ILEUS [None]
